FAERS Safety Report 6964001-1 (Version None)
Quarter: 2010Q3

REPORT INFORMATION
  Report Type: 
  Country: None (occurrence: None)
  Receive Date: 20100902
  Receipt Date: 20100902
  Transmission Date: 20110219
  Serious: Yes (Other)
  Sender: FDA-Public Use
  Company Number: None

PATIENT
  Age: 28 Year
  Sex: Male
  Weight: 108.8633 kg

DRUGS (2)
  1. PROZAC [Suspect]
     Indication: ANXIETY
  2. PROZAC [Suspect]
     Indication: DEPRESSION

REACTIONS (2)
  - ALCOHOL USE [None]
  - MANIA [None]
